FAERS Safety Report 12278734 (Version 1)
Quarter: 2016Q2

REPORT INFORMATION
  Report Type: Spontaneous
  Country: US (occurrence: US)
  Receive Date: 20160418
  Receipt Date: 20160418
  Transmission Date: 20160815
  Serious: Yes (Other)
  Sender: FDA-Public Use
  Company Number: US-ASTRAZENECA-2016SE40046

PATIENT
  Age: 65 Year
  Sex: Female
  Weight: 73 kg

DRUGS (5)
  1. NEXIUM 24HR [Suspect]
     Active Substance: ESOMEPRAZOLE MAGNESIUM
     Indication: GASTROOESOPHAGEAL REFLUX DISEASE
     Route: 048
     Dates: start: 20160403, end: 20160403
  2. HCTZ [Concomitant]
     Active Substance: HYDROCHLOROTHIAZIDE
  3. NEXIUM 24HR [Suspect]
     Active Substance: ESOMEPRAZOLE MAGNESIUM
     Indication: REGURGITATION
     Route: 048
     Dates: start: 20160328, end: 20160402
  4. NEXIUM 24HR [Suspect]
     Active Substance: ESOMEPRAZOLE MAGNESIUM
     Indication: REGURGITATION
     Route: 048
     Dates: start: 20160403, end: 20160403
  5. NEXIUM 24HR [Suspect]
     Active Substance: ESOMEPRAZOLE MAGNESIUM
     Indication: GASTROOESOPHAGEAL REFLUX DISEASE
     Route: 048
     Dates: start: 20160328, end: 20160402

REACTIONS (13)
  - Chest pain [Unknown]
  - Nervousness [Unknown]
  - Frequent bowel movements [Unknown]
  - Faeces discoloured [Unknown]
  - Anxiety [Unknown]
  - Drug ineffective [Unknown]
  - Dyspepsia [Unknown]
  - Haematochezia [Unknown]
  - Feeling abnormal [Not Recovered/Not Resolved]
  - Insomnia [Unknown]
  - Blood pressure increased [Unknown]
  - Diarrhoea [Unknown]
  - Product use issue [Unknown]
